FAERS Safety Report 7007259-5 (Version None)
Quarter: 2010Q3

REPORT INFORMATION
  Report Type: 
  Country: None (occurrence: None)
  Receive Date: 20100922
  Receipt Date: 20100909
  Transmission Date: 20110219
  Serious: Yes (Hospitalization, Other)
  Sender: FDA-Public Use
  Company Number: PHHY2010US55101

PATIENT
  Sex: Female
  Weight: 63.05 kg

DRUGS (14)
  1. EXJADE [Suspect]
     Indication: MYELODYSPLASTIC SYNDROME
     Dosage: 250 MG, DAILY
     Route: 048
     Dates: start: 20100728
  2. TYLENOL [Concomitant]
  3. LISINOPRIL [Concomitant]
  4. CITRACAL [Concomitant]
  5. MAGNESIUM [Concomitant]
  6. GLUCOSAMINE [Concomitant]
  7. CHONDROITIN [Concomitant]
  8. NEURONTIN [Concomitant]
  9. ASPIRIN [Concomitant]
  10. SYNTHROID [Concomitant]
  11. LIPITOR [Concomitant]
  12. ZINC [Concomitant]
  13. FOSAMAX [Concomitant]
  14. HUMALOG [Concomitant]

REACTIONS (4)
  - DIZZINESS [None]
  - FEBRILE NEUTROPENIA [None]
  - SYNCOPE [None]
  - VISUAL IMPAIRMENT [None]
